FAERS Safety Report 6396180-1 (Version None)
Quarter: 2009Q4

REPORT INFORMATION
  Report Type: 
  Country: None (occurrence: None)
  Receive Date: 20091010
  Receipt Date: 20091002
  Transmission Date: 20100525
  Serious: Yes (Other)
  Sender: FDA-Public Use
  Company Number: US-JNJCH-2009026320

PATIENT
  Age: 23 Year
  Sex: Female
  Weight: 56.7 kg

DRUGS (1)
  1. VISINE-A [Suspect]
     Indication: DRY EYE
     Dosage: TEXT:TWO TIMES PER DAY
     Route: 047
     Dates: start: 20090929, end: 20090929

REACTIONS (3)
  - APPLICATION SITE BURN [None]
  - EYE PAIN [None]
  - OCULAR HYPERAEMIA [None]
